FAERS Safety Report 4790952-2 (Version None)
Quarter: 2005Q4

REPORT INFORMATION
  Report Type: 
  Country: None (occurrence: None)
  Receive Date: 20051005
  Receipt Date: 20051005
  Transmission Date: 20060501
  Serious: No
  Sender: FDA-Public Use
  Company Number: None

PATIENT
  Age: 36 Year
  Sex: Female
  Weight: 77.1115 kg

DRUGS (11)
  1. FENTANYL [Suspect]
     Indication: ARTHRALGIA
     Dosage: 1 PATCH    SKIN/72 HRS.  TRANSDERMA
     Route: 062
     Dates: start: 20050217, end: 20050910
  2. FENTANYL [Suspect]
     Indication: PAIN
     Dosage: 1 PATCH    SKIN/72 HRS.  TRANSDERMA
     Route: 062
     Dates: start: 20050217, end: 20050910
  3. TOPAMAX [Concomitant]
  4. SINGULAIR [Concomitant]
  5. THYROID TAB [Concomitant]
  6. ZESTRIL [Concomitant]
  7. ZANAFLEX [Concomitant]
  8. VARIOUS ANTIBIOTICS [Concomitant]
  9. STEROID [Concomitant]
  10. ANTI-ITCH MEDS [Concomitant]
  11. ALBUTEROL [Concomitant]

REACTIONS (7)
  - BLISTER [None]
  - OVERDOSE [None]
  - PHARMACEUTICAL PRODUCT COMPLAINT [None]
  - PRURITUS [None]
  - RASH [None]
  - THERAPEUTIC RESPONSE UNEXPECTED WITH DRUG SUBSTITUTION [None]
  - URTICARIA [None]
